FAERS Safety Report 19438862 (Version 4)
Quarter: 2021Q3

REPORT INFORMATION
  Report Type: Spontaneous
  Country: TR (occurrence: TR)
  Receive Date: 20210618
  Receipt Date: 20210921
  Transmission Date: 20211014
  Serious: Yes (Other)
  Sender: FDA-Public Use
  Company Number: TR-PFIZER INC-2021668360

PATIENT
  Sex: Female

DRUGS (1)
  1. ENBREL [Suspect]
     Active Substance: ETANERCEPT
     Dosage: 50 MG
     Dates: start: 202103

REACTIONS (5)
  - Device use issue [Unknown]
  - Injection site warmth [Unknown]
  - Injection site abscess [Unknown]
  - Injection site pruritus [Unknown]
  - Pruritus [Unknown]
